FAERS Safety Report 11164762 (Version 1)
Quarter: 2015Q2

REPORT INFORMATION
  Report Type: Spontaneous
  Country: US (occurrence: US)
  Receive Date: 20150604
  Receipt Date: 20150604
  Transmission Date: 20150821
  Serious: No
  Sender: FDA-Public Use
  Company Number: US-PFIZER INC-2015181862

PATIENT
  Age: 58 Year
  Sex: Male
  Weight: 113.38 kg

DRUGS (1)
  1. LYRICA [Suspect]
     Active Substance: PREGABALIN
     Dosage: 300 MG, 2X/DAY

REACTIONS (4)
  - Insomnia [Unknown]
  - Neck pain [Unknown]
  - Pain in extremity [Unknown]
  - Asthenia [Unknown]
